FAERS Safety Report 7935285-8 (Version None)
Quarter: 2011Q4

REPORT INFORMATION
  Report Type: 
  Country: None (occurrence: None)
  Receive Date: 20111122
  Receipt Date: 20111110
  Transmission Date: 20120403
  Serious: Yes (Hospitalization)
  Sender: FDA-Public Use
  Company Number: CA-ELI_LILLY_AND_COMPANY-CA201110002710

PATIENT
  Sex: Female

DRUGS (13)
  1. FORTEO [Suspect]
     Indication: OSTEOPOROSIS
     Dosage: 20 UG, QD
     Route: 058
     Dates: start: 20110606
  2. FUROSEMIDE [Concomitant]
  3. VITAMIN D [Concomitant]
  4. METFORMIN HCL [Concomitant]
  5. METOPROLOL TARTRATE [Concomitant]
  6. CANDESARTAN CILEXETIL [Concomitant]
  7. FOLIC ACID [Concomitant]
  8. VITAMIN B-12 [Concomitant]
  9. FORTEO [Suspect]
     Dosage: 20 UG, QD
     Route: 058
  10. WARFARIN SODIUM [Concomitant]
  11. SENOKOT [Concomitant]
  12. METHOTREXATE [Concomitant]
  13. SOFLAX [Concomitant]

REACTIONS (3)
  - LUNG DISORDER [None]
  - CARDIAC DISORDER [None]
  - PULMONARY OEDEMA [None]
